FAERS Safety Report 10920178 (Version 10)
Quarter: 2016Q1

REPORT INFORMATION
  Report Type: Report from Study
  Country: DE (occurrence: DE)
  Receive Date: 20150317
  Receipt Date: 20160209
  Transmission Date: 20160525
  Serious: Yes (Hospitalization, Other)
  Sender: FDA-Public Use
  Company Number: PHHY2015DE028911

PATIENT
  Age: 69 Year
  Sex: Male
  Weight: 94 kg

DRUGS (12)
  1. TASIGNA [Suspect]
     Active Substance: NILOTINIB
     Indication: CHRONIC MYELOID LEUKAEMIA
     Dosage: 150 MG, BID (300 MG)
     Route: 048
     Dates: start: 20141216, end: 20150409
  2. MARCUMAR [Concomitant]
     Active Substance: PHENPROCOUMON
     Indication: ATRIAL FIBRILLATION
     Dosage: UNK
     Route: 065
  3. SIMVASTATIN. [Concomitant]
     Active Substance: SIMVASTATIN
     Indication: CARDIAC DISORDER
     Dosage: 40 MG, QD
     Route: 048
     Dates: start: 20090101
  4. DELIX [Concomitant]
     Active Substance: RAMIPRIL
     Indication: HYPERTENSION
     Dosage: 10 MG, QD
     Route: 048
     Dates: start: 2010
  5. RAMIPRIL. [Concomitant]
     Active Substance: RAMIPRIL
     Indication: HYPERTENSION
     Dosage: UNK
     Route: 065
     Dates: start: 20090101
  6. RAMILICH [Concomitant]
     Active Substance: RAMIPRIL
     Indication: CARDIAC FAILURE
  7. TASIGNA [Suspect]
     Active Substance: NILOTINIB
     Indication: PHILADELPHIA CHROMOSOME POSITIVE
     Dosage: 300 MG, BID (600 MG)
     Route: 048
     Dates: start: 20141201, end: 20141215
  8. L THYROXINE [Concomitant]
     Active Substance: LEVOTHYROXINE SODIUM
     Indication: HYPOTHYROIDISM
     Dosage: 100 OT, UNK
     Route: 048
     Dates: start: 20050101
  9. SIMVASTATIN. [Concomitant]
     Active Substance: SIMVASTATIN
     Indication: DIABETES MELLITUS
  10. RAMILICH [Concomitant]
     Active Substance: RAMIPRIL
     Indication: HYPERTENSION
     Dosage: 5 MG, QD
     Route: 065
     Dates: start: 20090101
  11. JANUMET [Concomitant]
     Active Substance: METFORMIN HYDROCHLORIDE\SITAGLIPTIN PHOSPHATE
     Indication: DIABETES MELLITUS
     Dosage: 2 DF, QD (1-0-1), (50/850 OT)
     Route: 048
     Dates: start: 2010
  12. RAMIPRIL. [Concomitant]
     Active Substance: RAMIPRIL
     Indication: CARDIAC FAILURE

REACTIONS (12)
  - Cardiac failure [Recovered/Resolved]
  - Dyspnoea exertional [Recovering/Resolving]
  - Hepatic cirrhosis [Not Recovered/Not Resolved]
  - Discomfort [Recovered/Resolved]
  - Oedema peripheral [Recovered/Resolved]
  - Weight increased [Recovered/Resolved]
  - Oedema peripheral [Recovered/Resolved]
  - Cardiomyopathy [Recovering/Resolving]
  - Pleural effusion [Recovered/Resolved]
  - Ascites [Not Recovered/Not Resolved]
  - Dyspnoea [Unknown]
  - Splenomegaly [Recovered/Resolved]

NARRATIVE: CASE EVENT DATE: 20141216
